FAERS Safety Report 24405517 (Version 1)
Quarter: 2024Q4

REPORT INFORMATION
  Report Type: Spontaneous
  Country: US (occurrence: US)
  Receive Date: 20241007
  Receipt Date: 20241007
  Transmission Date: 20250114
  Serious: Yes (Other)
  Sender: ALVOGEN
  Company Number: US-ALVOGEN-2024095611

PATIENT
  Sex: Female

DRUGS (2)
  1. TERIPARATIDE [Suspect]
     Active Substance: TERIPARATIDE
     Indication: Osteoporosis
     Dosage: STRENGTH: 20 MCG (250 MCG/ML) 1 TIMES A DAY, ONGOING??OFF PRESCRIPTION FOR LAST MONTH
     Route: 058
     Dates: start: 202310, end: 2024
  2. TERIPARATIDE [Suspect]
     Active Substance: TERIPARATIDE
     Indication: Osteoporosis
     Dosage: STRENGTH: 20 MCG (250 MCG/ML) 1 TIMES A DAY, ONGOING??OFF PRESCRIPTION FOR LAST MONTH
     Route: 058
     Dates: end: 2024

REACTIONS (1)
  - Chronic kidney disease [Unknown]
